FAERS Safety Report 5325837-6 (Version None)
Quarter: 2007Q2

REPORT INFORMATION
  Report Type: 
  Country: None (occurrence: None)
  Receive Date: 20070510
  Receipt Date: 20070503
  Transmission Date: 20071010
  Serious: Yes (Hospitalization)
  Sender: FDA-Public Use
  Company Number: 2007-02221

PATIENT
  Age: 52 Year
  Sex: Female

DRUGS (4)
  1. PREDNISOLONE [Suspect]
     Indication: GLOMERULONEPHRITIS PROLIFERATIVE
     Dosage: 20 MG, DAILY FOR 7 YEARS
     Dates: start: 20000101
  2. AZATHIOPRINE [Suspect]
     Indication: GLOMERULONEPHRITIS PROLIFERATIVE
     Dosage: 125 MG, DAILY FOR 5.5 MONTHS
  3. CYCLOSPORINE [Suspect]
     Indication: PROTEINURIA
  4. MYCOPHENOLATE MOFETIL [Suspect]
     Indication: PROTEINURIA

REACTIONS (1)
  - KAPOSI'S SARCOMA [None]
